FAERS Safety Report 7860598-8 (Version None)
Quarter: 2011Q4

REPORT INFORMATION
  Report Type: 
  Country: None (occurrence: None)
  Receive Date: 20111026
  Receipt Date: 20110927
  Transmission Date: 20120403
  Serious: Yes (Hospitalization)
  Sender: FDA-Public Use
  Company Number: 2011090176

PATIENT
  Sex: Female

DRUGS (1)
  1. COLYTE WITH FLAVOR PACKS [Suspect]
     Indication: BOWEL PREPARATION

REACTIONS (1)
  - HYPONATRAEMIA [None]
